FAERS Safety Report 11719493 (Version 2)
Quarter: 2015Q4

REPORT INFORMATION
  Report Type: Spontaneous
  Country: FR (occurrence: FR)
  Receive Date: 20151110
  Receipt Date: 20151231
  Transmission Date: 20160304
  Serious: Yes (Other)
  Sender: FDA-Public Use
  Company Number: FR-ASTRAZENECA-2015SF07872

PATIENT
  Age: 80 Year
  Sex: Male

DRUGS (6)
  1. METHOTREXATE [Suspect]
     Active Substance: METHOTREXATE
     Indication: SINUS CANCER METASTATIC
     Dosage: AT 40 MG EVERY 15 DAYS
     Route: 065
  2. BISOPROLOL [Concomitant]
     Active Substance: BISOPROLOL
  3. SIMVASTATIN. [Concomitant]
     Active Substance: SIMVASTATIN
  4. CANDESARTAN [Concomitant]
     Active Substance: CANDESARTAN
  5. METHOTREXATE [Suspect]
     Active Substance: METHOTREXATE
     Indication: SINUS CANCER METASTATIC
     Route: 065
  6. OMEPRAZOLE. [Suspect]
     Active Substance: OMEPRAZOLE
     Route: 048

REACTIONS (6)
  - Blood creatinine abnormal [Recovered/Resolved]
  - Skin lesion [Recovered/Resolved]
  - Creatinine renal clearance abnormal [Recovered/Resolved]
  - Pancytopenia [Recovered/Resolved]
  - Mucosal haemorrhage [Recovered/Resolved]
  - Mucosal inflammation [Recovered/Resolved]
